FAERS Safety Report 7241326-6 (Version None)
Quarter: 2011Q1

REPORT INFORMATION
  Report Type: 
  Country: None (occurrence: None)
  Receive Date: 20110124
  Receipt Date: 20110114
  Transmission Date: 20110831
  Serious: Yes (Hospitalization)
  Sender: FDA-Public Use
  Company Number: US-SANOFI-AVENTIS-2011SA003165

PATIENT
  Age: 78 Year
  Sex: Female

DRUGS (10)
  1. MULTAQ [Suspect]
     Indication: ATRIAL FIBRILLATION
     Route: 048
     Dates: start: 20101112, end: 20101212
  2. COREG [Concomitant]
  3. ATORVASTATIN [Suspect]
     Route: 065
     Dates: start: 20070101, end: 20101212
  4. DABIGATRAN ETEXILATE [Suspect]
     Route: 065
  5. FUROSEMIDE [Concomitant]
  6. WELLBUTRIN [Concomitant]
  7. ACCUPRIL [Concomitant]
  8. ESOMEPRAZOLE [Concomitant]
  9. JANUMET [Concomitant]
     Dosage: 50/500MG DAILY
  10. XANAX [Concomitant]

REACTIONS (6)
  - HEPATOCELLULAR INJURY [None]
  - ASPARTATE AMINOTRANSFERASE INCREASED [None]
  - NAUSEA [None]
  - ALANINE AMINOTRANSFERASE INCREASED [None]
  - VOMITING [None]
  - ABDOMINAL DISCOMFORT [None]
